FAERS Safety Report 5920864-X (Version None)
Quarter: 2008Q4

REPORT INFORMATION
  Report Type: 
  Country: None (occurrence: None)
  Receive Date: 20081016
  Receipt Date: 20081010
  Transmission Date: 20090506
  Serious: Yes (Death, Other)
  Sender: FDA-Public Use
  Company Number: US-PURDUE-USA_2008_0034833

PATIENT
  Sex: Male

DRUGS (2)
  1. OXYCONTIN [Suspect]
     Indication: DRUG USE FOR UNKNOWN INDICATION
  2. COCAINE                            /00157602/ [Suspect]
     Indication: DRUG ABUSE

REACTIONS (3)
  - DEATH [None]
  - OVERDOSE [None]
  - SUBSTANCE ABUSE [None]
